FAERS Safety Report 24573327 (Version 1)
Quarter: 2024Q4

REPORT INFORMATION
  Report Type: Spontaneous
  Country: CN (occurrence: CN)
  Receive Date: 20241101
  Receipt Date: 20241101
  Transmission Date: 20250115
  Serious: Yes (Other)
  Sender: BOEHRINGER INGELHEIM
  Company Number: CN-BoehringerIngelheim-2024-BI-060509

PATIENT
  Age: 7 Year
  Sex: Female
  Weight: 20.8 kg

DRUGS (3)
  1. ATROVENT [Suspect]
     Active Substance: IPRATROPIUM BROMIDE
     Indication: Bronchial hyperreactivity
     Route: 055
     Dates: start: 20241024, end: 20241029
  2. BUDESONIDE [Suspect]
     Active Substance: BUDESONIDE
     Indication: Inflammation
     Route: 055
     Dates: start: 20241024, end: 20241029
  3. ALBUTEROL SULFATE [Suspect]
     Active Substance: ALBUTEROL SULFATE
     Indication: Bronchial hyperreactivity
     Route: 055
     Dates: start: 20241024, end: 20241029

REACTIONS (2)
  - Rash [Recovering/Resolving]
  - Dermatitis allergic [Recovering/Resolving]

NARRATIVE: CASE EVENT DATE: 20241027
